FAERS Safety Report 21926490 (Version 2)
Quarter: 2023Q1

REPORT INFORMATION
  Report Type: Spontaneous
  Country: US (occurrence: US)
  Receive Date: 20230130
  Receipt Date: 20230201
  Transmission Date: 20230417
  Serious: Yes (Hospitalization)
  Sender: FDA-Public Use
  Company Number: US-KARYOPHARM-2023KPT000395

PATIENT

DRUGS (14)
  1. XPOVIO [Suspect]
     Active Substance: SELINEXOR
     Indication: Plasma cell myeloma
     Dosage: 60 MG, 2X/WEEK
     Route: 048
     Dates: start: 20221018
  2. DEXAMETHASONE [Concomitant]
     Active Substance: DEXAMETHASONE
  3. FOLIC ACID [Concomitant]
     Active Substance: FOLIC ACID
  4. INSULIN GLARGINE [Concomitant]
     Active Substance: INSULIN GLARGINE
  5. VALCYTE [Concomitant]
     Active Substance: VALGANCICLOVIR HYDROCHLORIDE
  6. TRAMADOL [Concomitant]
     Active Substance: TRAMADOL
  7. DIGOXIN [Concomitant]
     Active Substance: DIGOXIN
  8. METOPROLOL [Concomitant]
     Active Substance: METOPROLOL
  9. NORCO [Concomitant]
     Active Substance: ACETAMINOPHEN\HYDROCODONE BITARTRATE
  10. NALOXONE [Concomitant]
     Active Substance: NALOXONE
  11. LIDODERM [Concomitant]
     Active Substance: LIDOCAINE
  12. GABAPENTIN [Concomitant]
     Active Substance: GABAPENTIN
  13. NOVOLOG [Concomitant]
     Active Substance: INSULIN ASPART
  14. PROCHLORPERAZINE [Concomitant]
     Active Substance: PROCHLORPERAZINE

REACTIONS (4)
  - Dehydration [Unknown]
  - Haemoglobin decreased [Unknown]
  - Fatigue [Unknown]
  - Asthenia [Unknown]

NARRATIVE: CASE EVENT DATE: 20230124
